FAERS Safety Report 4345395-2 (Version None)
Quarter: 2004Q2

REPORT INFORMATION
  Report Type: 
  Country: None (occurrence: None)
  Receive Date: 20040421
  Receipt Date: 20031226
  Transmission Date: 20050107
  Serious: Yes (Hospitalization)
  Sender: FDA-Public Use
  Company Number: EM2003-0418

PATIENT
  Age: 69 Year
  Sex: Male

DRUGS (6)
  1. PROLEUKIN [Suspect]
     Indication: NEOPLASM MALIGNANT
     Dosage: 18 MIU, UNK, SUBCUTAN.
     Route: 058
     Dates: start: 20020805, end: 20020830
  2. FLUOROURACIL [Suspect]
     Indication: NEOPLASM MALIGNANT
     Dosage: 1900 MG, UNK, UNK
     Dates: start: 20020805, end: 20020923
  3. INTERFERON ALFA-2A (INTERFERON ALFA) [Suspect]
     Indication: NEOPLASM MALIGNANT
     Dates: start: 20020805, end: 20020927
  4. CODEINE (CODEINE) DROPS [Concomitant]
  5. METOCLOPRAMIDE HYDROCHLORIDE [Concomitant]
  6. ACETAMINOPHEN [Concomitant]

REACTIONS (11)
  - ANOREXIA [None]
  - ASCITES [None]
  - DRUG TOLERANCE DECREASED [None]
  - FEBRILE INFECTION [None]
  - GASTRITIS [None]
  - GENERAL PHYSICAL HEALTH DETERIORATION [None]
  - MALIGNANT NEOPLASM PROGRESSION [None]
  - METASTATIC RENAL CELL CARCINOMA [None]
  - PNEUMONIA KLEBSIELLA [None]
  - SEPSIS [None]
  - URINARY TRACT INFECTION [None]
